FAERS Safety Report 8885790 (Version 2)
Quarter: 2013Q2

REPORT INFORMATION
  Report Type: Spontaneous
  Country: US (occurrence: US)
  Receive Date: 20121104
  Receipt Date: 20130515
  Transmission Date: 20140414
  Serious: No
  Sender: FDA-Public Use
  Company Number: US-ASTRAZENECA-2012SE80389

PATIENT
  Age: 55 Year
  Sex: Male
  Weight: 95.3 kg

DRUGS (3)
  1. SEROQUEL XR [Suspect]
     Indication: BIPOLAR I DISORDER
     Route: 048
     Dates: start: 2011
  2. SEROQUEL XR [Suspect]
     Indication: BIPOLAR I DISORDER
     Route: 048
     Dates: end: 20121017
  3. SEROQUEL XR [Suspect]
     Indication: BIPOLAR I DISORDER
     Route: 048

REACTIONS (6)
  - Poor quality sleep [Unknown]
  - Chills [Unknown]
  - Feeling abnormal [Unknown]
  - Pruritus [Unknown]
  - Dizziness [Unknown]
  - Drug dose omission [Unknown]
